FAERS Safety Report 7724260-4 (Version None)
Quarter: 2011Q3

REPORT INFORMATION
  Report Type: 
  Country: None (occurrence: None)
  Receive Date: 20110829
  Receipt Date: 20110819
  Transmission Date: 20111222
  Serious: Yes (Hospitalization)
  Sender: FDA-Public Use
  Company Number: DKLU1072703

PATIENT
  Age: 10 Month

DRUGS (4)
  1. SABRIL [Suspect]
     Indication: INFANTILE SPASMS
     Dosage: ORAL
     Route: 048
     Dates: start: 20110512
  2. KEPPRA [Concomitant]
  3. KLONOPIN [Concomitant]
  4. TOPAMAX [Concomitant]

REACTIONS (2)
  - SOMNOLENCE [None]
  - DECREASED ACTIVITY [None]
